FAERS Safety Report 17984254 (Version 1)
Quarter: 2020Q3

REPORT INFORMATION
  Report Type: Spontaneous
  Country: TH (occurrence: TH)
  Receive Date: 20200706
  Receipt Date: 20200706
  Transmission Date: 20201103
  Serious: Yes (Death, Hospitalization, Other)
  Sender: FDA-Public Use
  Company Number: TH-B.I. PHARMACEUTICALS,INC./RIDGEFIELD-2020-BI-033679

PATIENT
  Age: 91 Year
  Sex: Male

DRUGS (2)
  1. PRADAXA [Suspect]
     Active Substance: DABIGATRAN ETEXILATE MESYLATE
     Indication: ATRIAL FIBRILLATION
  2. PRADAXA [Suspect]
     Active Substance: DABIGATRAN ETEXILATE MESYLATE
     Indication: CEREBROVASCULAR ACCIDENT PROPHYLAXIS
     Route: 065
     Dates: end: 20200625

REACTIONS (7)
  - Death [Fatal]
  - Sepsis [Unknown]
  - Upper gastrointestinal haemorrhage [Unknown]
  - Activated partial thromboplastin time prolonged [Not Recovered/Not Resolved]
  - Acute kidney injury [Unknown]
  - Necrotising fasciitis [Unknown]
  - Hypovolaemic shock [Unknown]

NARRATIVE: CASE EVENT DATE: 20200625
